FAERS Safety Report 5407942-9 (Version None)
Quarter: 2007Q3

REPORT INFORMATION
  Report Type: 
  Country: None (occurrence: None)
  Receive Date: 20070803
  Receipt Date: 20070724
  Transmission Date: 20080115
  Serious: Yes (Hospitalization)
  Sender: FDA-Public Use
  Company Number: HECT-10291

PATIENT
  Age: 45 Year
  Sex: Female

DRUGS (5)
  1. HECTOROL [Suspect]
     Indication: HYPERPARATHYROIDISM SECONDARY
     Dosage: 0.25 MG
  2. ACTIVASE [Concomitant]
  3. AMLODIPINE [Concomitant]
  4. ATORVASTATIN CALCIUM [Concomitant]
  5. EPOGEN [Concomitant]

REACTIONS (9)
  - ARTERIOVENOUS FISTULA SITE COMPLICATION [None]
  - BACTERAEMIA [None]
  - CARDIOVASCULAR DISORDER [None]
  - CATHETER RELATED COMPLICATION [None]
  - CATHETER SITE DISCHARGE [None]
  - HAEMATOCRIT DECREASED [None]
  - HAEMODIALYSIS [None]
  - HAEMOGLOBIN DECREASED [None]
  - STAPHYLOCOCCAL INFECTION [None]
